FAERS Safety Report 5875486-6 (Version None)
Quarter: 2008Q3

REPORT INFORMATION
  Report Type: 
  Country: None (occurrence: None)
  Receive Date: 20080909
  Receipt Date: 20080905
  Transmission Date: 20090109
  Serious: Yes (Other)
  Sender: FDA-Public Use
  Company Number: ES-WYE-G02114108

PATIENT
  Age: 85 Year
  Sex: Male

DRUGS (1)
  1. TAZOCEL [Suspect]
     Indication: RESPIRATORY TRACT INFECTION
     Dosage: 2/0,25 G
     Route: 042
     Dates: start: 20080713, end: 20080719

REACTIONS (2)
  - CONFUSIONAL STATE [None]
  - DELIRIUM [None]
